FAERS Safety Report 24933741 (Version 1)
Quarter: 2025Q1

REPORT INFORMATION
  Report Type: Spontaneous
  Country: US (occurrence: US)
  Receive Date: 20250206
  Receipt Date: 20250206
  Transmission Date: 20250409
  Serious: Yes (Hospitalization)
  Sender: CHEPLAPHARM
  Company Number: US-ROCHE-10000168685

PATIENT
  Sex: Female

DRUGS (4)
  1. CAPECITABINE [Suspect]
     Active Substance: CAPECITABINE
     Indication: Product used for unknown indication
  2. TRASTUZUMAB [Suspect]
     Active Substance: TRASTUZUMAB
     Indication: Product used for unknown indication
  3. TUKYSA [Suspect]
     Active Substance: TUCATINIB
     Indication: Product used for unknown indication
     Route: 048
     Dates: start: 20240117, end: 20241217
  4. TUKYSA [Suspect]
     Active Substance: TUCATINIB
     Indication: Product used for unknown indication
     Route: 048

REACTIONS (10)
  - Fall [Unknown]
  - Agitation [Unknown]
  - Disease progression [Unknown]
  - Fatigue [Unknown]
  - Liver function test increased [Unknown]
  - Nausea [Unknown]
  - Weight decreased [Unknown]
  - Cognitive disorder [Unknown]
  - Gait disturbance [Unknown]
  - Product administration error [Unknown]

NARRATIVE: CASE EVENT DATE: 20240923
